FAERS Safety Report 5184572-8 (Version None)
Quarter: 2007Q1

REPORT INFORMATION
  Report Type: 
  Country: None (occurrence: None)
  Receive Date: 20061212
  Receipt Date: 20061206
  Transmission Date: 20070707
  Serious: Yes (Death, Hospitalization)
  Sender: FDA-Public Use
  Company Number: 163-21880-06091176

PATIENT
  Age: 68 Year
  Sex: Male

DRUGS (6)
  1. REVLIMID [Suspect]
     Indication: MULTIPLE MYELOMA
     Dosage: 25  MG, QD X21 DAYS, ORAL
     Route: 048
     Dates: start: 20060601, end: 20060926
  2. DEXAMETHASONE TAB [Suspect]
     Indication: MULTIPLE MYELOMA
  3. ACETAMINOPHEN [Concomitant]
  4. ALEVE [Concomitant]
  5. LEVOTHYROXINE SODIUM [Concomitant]
  6. GLIPIZIDE [Concomitant]

REACTIONS (11)
  - ASTHENIA [None]
  - CONSTIPATION [None]
  - HYPOTENSION [None]
  - IMMUNODEFICIENCY [None]
  - MULTI-ORGAN FAILURE [None]
  - NAUSEA [None]
  - ORAL INTAKE REDUCED [None]
  - PNEUMONIA [None]
  - PNEUMONIA PRIMARY ATYPICAL [None]
  - PULMONARY EMBOLISM [None]
  - SEPSIS [None]
